FAERS Safety Report 5827268-9 (Version None)
Quarter: 2008Q3

REPORT INFORMATION
  Report Type: 
  Country: None (occurrence: None)
  Receive Date: 20080724
  Receipt Date: 20080711
  Transmission Date: 20090109
  Serious: Yes (Other)
  Sender: FDA-Public Use
  Company Number: DSU-2008-00833

PATIENT
  Age: 65 Year
  Sex: Female
  Weight: 70 kg

DRUGS (3)
  1. OLMETEC HCT (HYDROCHLOROTHIAZIDE, OLMESARTAN MEDOXOMIL) (TABLET) (HYDR [Suspect]
     Indication: HYPERTENSION
     Dosage: 20/12.5 MG (QD), PER ORAL; 40/12.5MG (QD), PER ORAL
     Route: 048
  2. OLMESARTAN MEDOXOMIL [Suspect]
     Indication: HYPERTENSION
     Dosage: 40 MG (40 MG, QD), PER ORAL
     Route: 048
     Dates: start: 20080605, end: 20080605
  3. ATENSINA (CLONIDINE HYDROCHLORIDE) (CLONIDINE HYDROCHLORIDE) [Concomitant]

REACTIONS (6)
  - BLOOD PRESSURE DECREASED [None]
  - CARDIAC FAILURE [None]
  - DRUG INEFFECTIVE [None]
  - INCORRECT DOSE ADMINISTERED [None]
  - MEDICATION ERROR [None]
  - TREMOR [None]
